FAERS Safety Report 5925633-2 (Version None)
Quarter: 2008Q4

REPORT INFORMATION
  Report Type: 
  Country: None (occurrence: None)
  Receive Date: 20081016
  Receipt Date: 20081001
  Transmission Date: 20090506
  Serious: Yes (Other)
  Sender: FDA-Public Use
  Company Number: 1000001283

PATIENT
  Age: 33 Year
  Sex: Female

DRUGS (9)
  1. CITALOPRAM HYDROBROMIDE [Suspect]
     Indication: ANXIETY
     Dates: start: 20000101, end: 20050101
  2. CITALOPRAM HYDROBROMIDE [Suspect]
     Indication: DEPRESSION
     Dates: start: 20000101, end: 20050101
  3. ESCITALOPRAM (ESCITALOPRAM OXALATE) (TABLETS)-(ESCITALOPRAM OXALATE) [Concomitant]
  4. EFFEXOR [Concomitant]
  5. TOLVON [Concomitant]
  6. REMERON [Concomitant]
  7. LAMICTAL [Concomitant]
  8. SOBRIL [Concomitant]
  9. VELLERGAN [Concomitant]

REACTIONS (7)
  - DENTAL CARIES [None]
  - FATIGUE [None]
  - FIBROMYALGIA [None]
  - PAIN [None]
  - PAIN IN EXTREMITY [None]
  - TEETH BRITTLE [None]
  - TOOTH DISORDER [None]
